FAERS Safety Report 16789000 (Version 1)
Quarter: 2019Q3

REPORT INFORMATION
  Report Type: Report from Study
  Country: US (occurrence: US)
  Receive Date: 20190910
  Receipt Date: 20190910
  Transmission Date: 20191005
  Serious: Yes (Other)
  Sender: FDA-Public Use
  Company Number: US-BRISTOL-MYERS SQUIBB COMPANY-BMS-2019-086765

PATIENT
  Sex: Female
  Weight: 113.38 kg

DRUGS (1)
  1. APIXABAN [Suspect]
     Active Substance: APIXABAN
     Indication: EMBOLISM VENOUS
     Dosage: 2 TAB, BID, FOR 7 DAYS
     Route: 048
     Dates: start: 20190830

REACTIONS (3)
  - Intentional product use issue [Unknown]
  - Thrombosis [Unknown]
  - Peripheral swelling [Unknown]
